FAERS Safety Report 11328371 (Version 2)
Quarter: 2016Q3

REPORT INFORMATION
  Report Type: Spontaneous
  Country: US (occurrence: US)
  Receive Date: 20150731
  Receipt Date: 20160807
  Transmission Date: 20161109
  Serious: No
  Sender: FDA-Public Use
  Company Number: US-ENDO PHARMACEUTICALS INC.-2015-000323

PATIENT
  Age: 41 Year
  Sex: Female
  Weight: 79.45 kg

DRUGS (1)
  1. PROPYLTHIOURACIL TABLETS 50 MG [Suspect]
     Active Substance: PROPYLTHIOURACIL
     Indication: PRODUCT USED FOR UNKNOWN INDICATION
     Route: 065
     Dates: start: 20150316, end: 20150616

REACTIONS (4)
  - Blood alcohol increased [Recovered/Resolved]
  - Drug screen positive [Recovered/Resolved]
  - Alcohol test false positive [Recovered/Resolved]
  - Drug screen false positive [Recovered/Resolved]

NARRATIVE: CASE EVENT DATE: 201503
